FAERS Safety Report 10867544 (Version 2)
Quarter: 2015Q1

REPORT INFORMATION
  Report Type: Spontaneous
  Country: US (occurrence: US)
  Receive Date: 20150225
  Receipt Date: 20150309
  Transmission Date: 20150721
  Serious: Yes (Hospitalization, Other)
  Sender: FDA-Public Use
  Company Number: US-JNJFOC-20150209072

PATIENT

DRUGS (2)
  1. USTEKINUMAB [Suspect]
     Active Substance: USTEKINUMAB
     Indication: CROHN^S DISEASE
     Route: 058
  2. USTEKINUMAB [Suspect]
     Active Substance: USTEKINUMAB
     Indication: CROHN^S DISEASE
     Dosage: 270 MG BOOSTER DOSE AT WEEK 8 IF NO OR LIMITED RESPONSE
     Route: 058

REACTIONS (6)
  - Pelvic abscess [Unknown]
  - Off label use [Unknown]
  - Infection [Unknown]
  - Drug ineffective [Unknown]
  - Anal abscess [Unknown]
  - Urinary tract infection [Unknown]
